FAERS Safety Report 9814652 (Version 2)
Quarter: 2014Q1

REPORT INFORMATION
  Report Type: Spontaneous
  Country: US (occurrence: US)
  Receive Date: 20140113
  Receipt Date: 20140207
  Transmission Date: 20141002
  Serious: Yes (Hospitalization, Other)
  Sender: FDA-Public Use
  Company Number: US-B.I. PHARMACEUTICALS,INC./RIDGEFIELD-2014-BI-01022BP

PATIENT
  Sex: Female
  Weight: 65.77 kg

DRUGS (8)
  1. PRADAXA [Suspect]
     Indication: ATRIAL FIBRILLATION
     Dosage: 300 MG
     Route: 048
     Dates: start: 20110729, end: 20110831
  2. ASPIRIN [Concomitant]
     Dosage: 81 MG
  3. NIASPAN ER [Concomitant]
     Dosage: 1000 MG
  4. NOVOLIN [Concomitant]
  5. LASIX [Concomitant]
     Dosage: 20 MG
  6. COREG [Concomitant]
     Dosage: 12.5 MG
  7. LISINOPRIL [Concomitant]
     Dosage: 20 MG
  8. SYNTHROID [Concomitant]
     Dosage: 25 MCG

REACTIONS (3)
  - Gastrointestinal haemorrhage [Recovered/Resolved]
  - Haemorrhagic anaemia [Unknown]
  - Renal failure acute [Recovered/Resolved]
